FAERS Safety Report 5634394-6 (Version None)
Quarter: 2008Q1

REPORT INFORMATION
  Report Type: 
  Country: None (occurrence: None)
  Receive Date: 20080222
  Receipt Date: 20080211
  Transmission Date: 20080703
  Serious: Yes (Other)
  Sender: FDA-Public Use
  Company Number: US-ELI_LILLY_AND_COMPANY-US200802002223

PATIENT
  Sex: Male

DRUGS (10)
  1. CIALIS [Suspect]
     Indication: PROSTATECTOMY
     Dosage: 10 MG, DAILY (1/D)
     Route: 048
     Dates: start: 20070912, end: 20070923
  2. CIALIS [Suspect]
     Dosage: 10 MG, DAILY (1/D)
     Route: 048
     Dates: start: 20080206, end: 20080207
  3. FOSAMAX [Concomitant]
     Dosage: 70 MG, WEEKLY (1/W)
  4. ERGOCALCIFEROL [Concomitant]
     Dosage: 400 UNK, 2/D
  5. CALCIUM [Concomitant]
     Dosage: 600 MG, 2/D
  6. METAMUCIL [Concomitant]
     Dosage: UNK, DAILY (1/D)
  7. MULTI-VITAMIN [Concomitant]
     Dosage: UNK, DAILY (1/D)
  8. ZYRTEC [Concomitant]
     Indication: URTICARIA
  9. ALLEGRA [Concomitant]
     Indication: URTICARIA
  10. RANITIDINE [Concomitant]
     Indication: URTICARIA

REACTIONS (6)
  - DEEP VEIN THROMBOSIS POSTOPERATIVE [None]
  - INSOMNIA [None]
  - LYMPHOCELE [None]
  - OEDEMA PERIPHERAL [None]
  - PAIN IN EXTREMITY [None]
  - POST PROCEDURAL COMPLICATION [None]
